FAERS Safety Report 4277600-5 (Version None)
Quarter: 2004Q1

REPORT INFORMATION
  Report Type: 
  Country: None (occurrence: None)
  Receive Date: 20040122
  Receipt Date: 20031208
  Transmission Date: 20041129
  Serious: Yes (Other)
  Sender: FDA-Public Use
  Company Number: WAES 0312USA01165

PATIENT
  Age: 50 Year
  Sex: Female

DRUGS (4)
  1. ANALGESIC OR ANESTHETIC (UNSPECIFIED) [Suspect]
  2. PEPCID RPD [Suspect]
     Indication: GASTRITIS
     Route: 048
     Dates: start: 20030908, end: 20031009
  3. THYRADIN-S [Concomitant]
     Indication: HYPOTHYROIDISM
     Route: 048
     Dates: start: 20010910
  4. GASMOTIN [Concomitant]
     Route: 048
     Dates: start: 20030318, end: 20031009

REACTIONS (9)
  - ALANINE AMINOTRANSFERASE INCREASED [None]
  - ASPARTATE AMINOTRANSFERASE INCREASED [None]
  - BACK PAIN [None]
  - BLOOD BILIRUBIN INCREASED [None]
  - DYSPEPSIA [None]
  - GASTRIC POLYPS [None]
  - GASTRITIS [None]
  - LIVER DISORDER [None]
  - NAUSEA [None]
